FAERS Safety Report 16310664 (Version 2)
Quarter: 2019Q2

REPORT INFORMATION
  Report Type: Spontaneous
  Country: VI (occurrence: VI)
  Receive Date: 20190514
  Receipt Date: 20190521
  Transmission Date: 20190711
  Serious: No
  Sender: FDA-Public Use
  Company Number: VI-GILEAD-2019-0407308

PATIENT
  Age: 24 Year
  Sex: Male
  Weight: 67.39 kg

DRUGS (5)
  1. MVI [VITAMINS NOS] [Concomitant]
     Dosage: UNK
     Dates: start: 201805
  2. VIT D [Concomitant]
     Active Substance: VITAMIN D NOS
     Dosage: UNK
  3. GENVOYA [Suspect]
     Active Substance: COBICISTAT\ELVITEGRAVIR\EMTRICITABINE\TENOFOVIR ALAFENAMIDE FUMARATE
     Indication: HIV INFECTION
     Route: 065
  4. METOPROLOL. [Concomitant]
     Active Substance: METOPROLOL
     Indication: HYPERTENSION
     Dosage: 50 MG
     Dates: end: 201902
  5. AMLODIPINE [Concomitant]
     Active Substance: AMLODIPINE BESYLATE
     Indication: HYPERTENSION
     Dosage: 5 MG
     Dates: start: 201902

REACTIONS (2)
  - Neutropenia [Recovered/Resolved]
  - White blood cell count decreased [Recovered/Resolved]

NARRATIVE: CASE EVENT DATE: 201612
